FAERS Safety Report 6725535-8 (Version None)
Quarter: 2010Q2

REPORT INFORMATION
  Report Type: 
  Country: None (occurrence: None)
  Receive Date: 20100514
  Receipt Date: 20100505
  Transmission Date: 20101027
  Serious: Yes (Death, Hospitalization)
  Sender: FDA-Public Use
  Company Number: US-ROCHE-696658

PATIENT
  Sex: Male
  Weight: 97.1 kg

DRUGS (1)
  1. CAPECITABINE [Suspect]
     Indication: COLORECTAL CANCER
     Dosage: 2000 MG IN THE MORNING AND 1500 MG AT BEDTIME.
     Route: 048
     Dates: start: 20091021, end: 20091028

REACTIONS (6)
  - DEHYDRATION [None]
  - GASTROENTERITIS RADIATION [None]
  - MALNUTRITION [None]
  - PNEUMONIA ASPIRATION [None]
  - RECTAL ABSCESS [None]
  - STAPHYLOCOCCAL SEPSIS [None]
